FAERS Safety Report 14253755 (Version 2)
Quarter: 2018Q1

REPORT INFORMATION
  Report Type: Spontaneous
  Country: US (occurrence: US)
  Receive Date: 20171205
  Receipt Date: 20180129
  Transmission Date: 20180508
  Serious: Yes (Other)
  Sender: FDA-Public Use
  Company Number: US-DSJP-DSU-2017-143575

PATIENT

DRUGS (1)
  1. BENICAR [Suspect]
     Active Substance: OLMESARTAN MEDOXOMIL
     Indication: PRODUCT USED FOR UNKNOWN INDICATION
     Dosage: 40 MG, UNK
     Dates: start: 20050401

REACTIONS (8)
  - Inflammatory bowel disease [Not Recovered/Not Resolved]
  - Sprue-like enteropathy [Unknown]
  - Hiatus hernia [Unknown]
  - Anaemia [Unknown]
  - Diverticulum intestinal [Not Recovered/Not Resolved]
  - Colitis ischaemic [Unknown]
  - Haemorrhoids [Not Recovered/Not Resolved]
  - Proctitis [Unknown]

NARRATIVE: CASE EVENT DATE: 20050404
